FAERS Safety Report 9458917 (Version 4)
Quarter: 2015Q1

REPORT INFORMATION
  Report Type: Spontaneous
  Country: US (occurrence: US)
  Receive Date: 20130814
  Receipt Date: 20150204
  Transmission Date: 20150721
  Serious: Yes (Hospitalization, Other)
  Sender: FDA-Public Use
  Company Number: US-009507513-1308USA003197

PATIENT
  Sex: Female

DRUGS (1)
  1. FOSAMAX [Suspect]
     Active Substance: ALENDRONATE SODIUM
     Indication: OSTEOPOROSIS
     Dosage: 10 MG, UNK
     Route: 048
     Dates: start: 199907, end: 201107

REACTIONS (41)
  - Thyroid disorder [Unknown]
  - Atrial fibrillation [Unknown]
  - Fall [Unknown]
  - Bursitis [Unknown]
  - Back pain [Unknown]
  - Spinal column stenosis [Unknown]
  - Vitreous detachment [Unknown]
  - Depression [Unknown]
  - Iridectomy [Unknown]
  - Staphylococcal bacteraemia [Unknown]
  - Arthralgia [Unknown]
  - Deafness [Unknown]
  - Borderline glaucoma [Unknown]
  - Vascular calcification [Unknown]
  - Peptic ulcer [Unknown]
  - Blindness [Unknown]
  - Fall [Unknown]
  - Arthropathy [Unknown]
  - Iridectomy [Unknown]
  - Cholelithiasis [Unknown]
  - Osteoporosis [Unknown]
  - Hypercholesterolaemia [Unknown]
  - Appendicectomy [Unknown]
  - Femur fracture [Recovered/Resolved]
  - Cataract [Unknown]
  - Iridotomy [Unknown]
  - Uterine leiomyoma [Unknown]
  - Clostridium difficile colitis [Unknown]
  - Intramedullary rod insertion [Unknown]
  - Dry eye [Unknown]
  - Essential hypertension [Unknown]
  - Iridotomy [Unknown]
  - Calcinosis [Unknown]
  - Spinal osteoarthritis [Unknown]
  - Pain [Unknown]
  - Osteopenia [Unknown]
  - Osteoarthritis [Unknown]
  - Hypothyroidism [Unknown]
  - Arthritis [Unknown]
  - Anaemia [Unknown]
  - Gastrooesophageal reflux disease [Unknown]

NARRATIVE: CASE EVENT DATE: 20061012
